FAERS Safety Report 10730498 (Version 1)
Quarter: 2015Q1

REPORT INFORMATION
  Report Type: Report from Study
  Country: GB (occurrence: GB)
  Receive Date: 20150122
  Receipt Date: 20150122
  Transmission Date: 20150721
  Serious: Yes (Death)
  Sender: FDA-Public Use
  Company Number: GB-MUNDIPHARMA DS AND PHARMACOVIGILANCE-GBR-2015-0025074

PATIENT
  Age: 43 Year
  Sex: Female

DRUGS (4)
  1. DOCUSATE [Concomitant]
     Active Substance: DOCUSATE
  2. SENNA [Concomitant]
     Active Substance: SENNA LEAF\SENNOSIDES\SENNOSIDES A AND B
  3. BISACODYL. [Concomitant]
     Active Substance: BISACODYL
  4. OXYCODONE HCL/NALOXONE HCL [Suspect]
     Active Substance: NALOXONE HYDROCHLORIDE\OXYCODONE HYDROCHLORIDE
     Indication: CANCER PAIN
     Dosage: UNK
     Route: 065
     Dates: start: 20140718, end: 20141119

REACTIONS (1)
  - Death [Fatal]

NARRATIVE: CASE EVENT DATE: 20141119
